FAERS Safety Report 9390724 (Version 1)
Quarter: 2013Q3

REPORT INFORMATION
  Report Type: Spontaneous
  Country: CH (occurrence: CH)
  Receive Date: 20130709
  Receipt Date: 20130709
  Transmission Date: 20140515
  Serious: Yes (Other)
  Sender: FDA-Public Use
  Company Number: CH-ASTRAZENECA-2013SE50749

PATIENT
  Age: 8 Year
  Sex: Female
  Weight: 25 kg

DRUGS (3)
  1. VANNAIR [Suspect]
     Indication: ASTHMA
     Dosage: 1-2 PUFFS PER DAY, INTERMITTENTLY
     Route: 055
     Dates: end: 2013
  2. VANNAIR [Suspect]
     Indication: CONJUNCTIVITIS ALLERGIC
     Dosage: 1-2 PUFFS PER DAY, INTERMITTENTLY
     Route: 055
     Dates: end: 2013
  3. VANNAIR [Suspect]
     Indication: ORAL ALLERGY SYNDROME
     Dosage: 1-2 PUFFS PER DAY, INTERMITTENTLY
     Route: 055
     Dates: end: 2013

REACTIONS (3)
  - Hallucination [Recovered/Resolved]
  - Anxiety [Recovered/Resolved]
  - Sleep disorder [Recovered/Resolved]
